FAERS Safety Report 17681078 (Version 11)
Quarter: 2021Q2

REPORT INFORMATION
  Report Type: Report from Study
  Country: NL (occurrence: NL)
  Receive Date: 20200417
  Receipt Date: 20210510
  Transmission Date: 20210716
  Serious: Yes (Hospitalization, Other)
  Sender: FDA-Public Use
  Company Number: NVSC2020NL097940

PATIENT
  Age: 5 Year
  Sex: Female
  Weight: 18 kg

DRUGS (20)
  1. MACROGOL [Concomitant]
     Active Substance: POLYETHYLENE GLYCOLS
     Dosage: 15 MG QD/BID
     Route: 065
     Dates: start: 20201207, end: 20201224
  2. AZITHROMYCIN ANHYDROUS. [Concomitant]
     Active Substance: AZITHROMYCIN ANHYDROUS
     Indication: ANTIBIOTIC PROPHYLAXIS
     Dosage: 172 MG, TID
     Route: 065
  3. VENTOLIN [Concomitant]
     Active Substance: ALBUTEROL SULFATE
     Indication: PRODUCT USED FOR UNKNOWN INDICATION
     Dosage: 2.5 MG, BID
     Route: 065
  4. VIDISIC CARBOGEL [Concomitant]
     Indication: FACIAL PARALYSIS
     Dosage: 1 DOSE QID
     Route: 065
     Dates: start: 20201207, end: 20201225
  5. DABRAFENIB [Suspect]
     Active Substance: DABRAFENIB
     Dosage: 20 MG, BID (2DD) (40 %)
     Route: 048
     Dates: start: 20210428
  6. TRAMETINIB [Suspect]
     Active Substance: TRAMETINIB
     Dosage: UNK
     Route: 048
     Dates: end: 20200709
  7. MACROGOL [Concomitant]
     Active Substance: POLYETHYLENE GLYCOLS
     Indication: CONSTIPATION
     Dosage: 4 G, QD
     Route: 065
     Dates: start: 20190306
  8. CHOLECALCIFEROL [Concomitant]
     Active Substance: CHOLECALCIFEROL
     Indication: PRODUCT USED FOR UNKNOWN INDICATION
     Dosage: 400 (IE), QD
     Route: 065
  9. DABRAFENIB [Suspect]
     Active Substance: DABRAFENIB
     Dosage: 40 MG, BID (2DD)
     Route: 048
     Dates: end: 20201020
  10. DABRAFENIB [Suspect]
     Active Substance: DABRAFENIB
     Dosage: 20 MG, BID (2DD) (40 %)
     Route: 048
     Dates: start: 20210329
  11. DURATEARS [Concomitant]
     Active Substance: MINERAL OIL EMULSION\PETROLATUM
     Dosage: UNK, QID (STRENGTH: 3, 5 G)
     Route: 065
     Dates: end: 20210426
  12. DABRAFENIB [Suspect]
     Active Substance: DABRAFENIB
     Dosage: 20 MG, BID (2DD)
     Route: 048
     Dates: end: 20201225
  13. TRAMETINIB [Suspect]
     Active Substance: TRAMETINIB
     Indication: ASTROCYTOMA
     Dosage: 0.625 MG, QD
     Route: 048
     Dates: start: 20200217, end: 20200603
  14. DABRAFENIB [Suspect]
     Active Substance: DABRAFENIB
     Dosage: 40 MG, BID (2DD)
     Route: 048
     Dates: end: 20210324
  15. DURATEARS [Concomitant]
     Active Substance: MINERAL OIL EMULSION\PETROLATUM
     Indication: FACIAL PARALYSIS
     Dosage: 250 MG, QID PRN
     Route: 065
     Dates: start: 20201207, end: 20201225
  16. DABRAFENIB [Suspect]
     Active Substance: DABRAFENIB
     Indication: ASTROCYTOMA
     Dosage: 50 MG, BID
     Route: 048
     Dates: start: 20200217, end: 20200603
  17. DABRAFENIB [Suspect]
     Active Substance: DABRAFENIB
     Dosage: 40 MG, BID (2DD)
     Route: 048
     Dates: end: 20210426
  18. MACROGOL [Concomitant]
     Active Substance: POLYETHYLENE GLYCOLS
     Dosage: 20 G QD/BID
     Route: 065
     Dates: end: 20210426
  19. ONDANSETRON [Concomitant]
     Active Substance: ONDANSETRON
     Indication: NAUSEA
     Dosage: 4 MG, TID
     Route: 065
  20. VIDISIC CARBOGEL [Concomitant]
     Dosage: 1 DOSE QID
     Route: 065
     Dates: end: 20210426

REACTIONS (46)
  - Abdominal pain upper [Recovering/Resolving]
  - Staphylococcal infection [Unknown]
  - Hypoglycaemia [Recovered/Resolved]
  - Pneumatosis intestinalis [Not Recovered/Not Resolved]
  - Diarrhoea [Not Recovered/Not Resolved]
  - Productive cough [Unknown]
  - Vascular device infection [Recovered/Resolved]
  - Hyperglycaemia [Recovered/Resolved]
  - Headache [Recovered/Resolved]
  - Hyperglycaemia [Unknown]
  - Pyrexia [Recovered/Resolved]
  - Urinary tract infection [Recovered/Resolved]
  - Hyperglycaemia [Recovered/Resolved]
  - Loss of consciousness [Recovered/Resolved]
  - Syncope [Recovered/Resolved]
  - Anaemia [Recovered/Resolved]
  - Abdominal pain upper [Recovered/Resolved]
  - Hypophosphataemia [Recovering/Resolving]
  - Pyrexia [Recovered/Resolved]
  - Dysuria [Recovered/Resolved]
  - Pyrexia [Recovered/Resolved]
  - Syncope [Recovered/Resolved]
  - Pyrexia [Recovered/Resolved]
  - Hyponatraemia [Recovered/Resolved]
  - Pancreatitis acute [Recovered/Resolved]
  - Lower respiratory tract inflammation [Not Recovered/Not Resolved]
  - Lower respiratory tract infection [Not Recovered/Not Resolved]
  - Human bocavirus infection [Unknown]
  - Hypokalaemia [Not Recovered/Not Resolved]
  - Loss of consciousness [Recovered/Resolved]
  - White blood cell count increased [Unknown]
  - Hypoglycaemia [Unknown]
  - Lagophthalmos [Recovering/Resolving]
  - Corneal erosion [Recovering/Resolving]
  - Respiratory alkalosis [Recovering/Resolving]
  - Anger [Recovered/Resolved]
  - Rectal prolapse [Recovered/Resolved]
  - C-reactive protein increased [Unknown]
  - Pyrexia [Recovered/Resolved]
  - Pyrexia [Recovered/Resolved]
  - Hypoxia [Not Recovered/Not Resolved]
  - Oxygen saturation decreased [Not Recovered/Not Resolved]
  - Hypoglycaemia [Recovering/Resolving]
  - Oedema peripheral [Not Recovered/Not Resolved]
  - Face oedema [Not Recovered/Not Resolved]
  - Urinary incontinence [Recovered/Resolved]

NARRATIVE: CASE EVENT DATE: 20200219
